FAERS Safety Report 18679422 (Version 4)
Quarter: 2021Q2

REPORT INFORMATION
  Report Type: Report from Study
  Country: US (occurrence: US)
  Receive Date: 20201230
  Receipt Date: 20210527
  Transmission Date: 20210717
  Serious: Yes (Hospitalization, Other)
  Sender: FDA-Public Use
  Company Number: US-BEH-2020126640

PATIENT
  Age: 40 Year
  Sex: Female

DRUGS (2)
  1. HAEGARDA [Suspect]
     Active Substance: HUMAN C1-ESTERASE INHIBITOR
     Indication: PROPHYLAXIS
     Dosage: 4000 / EVERY 3?4 DAYS
     Route: 058
     Dates: start: 20201208
  2. HAEGARDA [Suspect]
     Active Substance: HUMAN C1-ESTERASE INHIBITOR
     Indication: HEREDITARY ANGIOEDEMA
     Dosage: 4000 INTERNATIONAL UNIT, BIW
     Route: 058
     Dates: start: 20201218

REACTIONS (12)
  - Pyrexia [Unknown]
  - Infusion site swelling [Unknown]
  - Hereditary angioedema [Recovering/Resolving]
  - Nasal congestion [Unknown]
  - Neutrophil count decreased [Not Recovered/Not Resolved]
  - Headache [Unknown]
  - Headache [Recovering/Resolving]
  - Neutropenia [Not Recovered/Not Resolved]
  - Intracranial pressure increased [Recovering/Resolving]
  - Herpes zoster [Recovering/Resolving]
  - Fatigue [Recovering/Resolving]
  - Migraine [Recovering/Resolving]

NARRATIVE: CASE EVENT DATE: 20201208
